FAERS Safety Report 22005221 (Version 1)
Quarter: 2023Q1

REPORT INFORMATION
  Report Type: Spontaneous
  Country: MX (occurrence: MX)
  Receive Date: 20230217
  Receipt Date: 20230217
  Transmission Date: 20230418
  Serious: Yes (Hospitalization)
  Sender: FDA-Public Use
  Company Number: MX-BAYER-2023P009935

PATIENT
  Age: 31 Year
  Sex: Male

DRUGS (1)
  1. VITRAKVI [Suspect]
     Active Substance: LAROTRECTINIB
     Indication: Metastatic salivary gland cancer
     Dosage: 100 MG, BID
     Route: 048
     Dates: start: 20221114, end: 20230207

REACTIONS (1)
  - Metastatic salivary gland cancer [Not Recovered/Not Resolved]

NARRATIVE: CASE EVENT DATE: 20230201
